FAERS Safety Report 6863997-6 (Version None)
Quarter: 2010Q3

REPORT INFORMATION
  Report Type: 
  Country: None (occurrence: None)
  Receive Date: 20100721
  Receipt Date: 20080325
  Transmission Date: 20110219
  Serious: No
  Sender: FDA-Public Use
  Company Number: US-PFIZER INC-2008023302

PATIENT
  Sex: Female
  Weight: 109.1 kg

DRUGS (6)
  1. CHANTIX [Suspect]
     Indication: SMOKING CESSATION THERAPY
     Dates: start: 20070601
  2. HYZAAR [Concomitant]
  3. LAMICTAL [Concomitant]
  4. TRAZODONE HYDROCHLORIDE [Concomitant]
  5. PAXIL [Concomitant]
  6. RISPERIDONE [Concomitant]

REACTIONS (1)
  - DRUG INEFFECTIVE [None]
